FAERS Safety Report 25633248 (Version 1)
Quarter: 2025Q3

REPORT INFORMATION
  Report Type: Spontaneous
  Country: BR (occurrence: BR)
  Receive Date: 20250801
  Receipt Date: 20250801
  Transmission Date: 20251020
  Serious: Yes (Hospitalization)
  Sender: NOVARTIS
  Company Number: BR-002147023-NVSC2025BR120252

PATIENT
  Age: 16 Year
  Sex: Female
  Weight: 67 kg

DRUGS (4)
  1. AFINITOR [Suspect]
     Active Substance: EVEROLIMUS
     Indication: Tuberous sclerosis complex
     Dosage: 1 DOSAGE FORM, QD (1 TABLET DAILY, WITH 30 CPS (AS REPORTED))
     Route: 065
     Dates: start: 20140101
  2. AFINITOR [Suspect]
     Active Substance: EVEROLIMUS
     Indication: Autism spectrum disorder
  3. AFINITOR [Suspect]
     Active Substance: EVEROLIMUS
     Indication: Epilepsy
  4. Carbital [Concomitant]
     Indication: Product used for unknown indication
     Route: 065

REACTIONS (2)
  - Seizure [Unknown]
  - Product use in unapproved indication [Unknown]

NARRATIVE: CASE EVENT DATE: 20250725
